FAERS Safety Report 18781414 (Version 1)
Quarter: 2021Q1

REPORT INFORMATION
  Report Type: Report from Study
  Country: CG (occurrence: CG)
  Receive Date: 20210125
  Receipt Date: 20210125
  Transmission Date: 20210419
  Serious: Yes (Death, Other)
  Sender: FDA-Public Use
  Company Number: CG-ADVANZ PHARMA-202012011086

PATIENT

DRUGS (5)
  1. PARACETAMOL [Suspect]
     Active Substance: ACETAMINOPHEN
     Indication: COVID-19
     Dosage: UNK UNK, PRN
     Route: 048
     Dates: start: 20201201
  2. HYDROXYCHLOROQUINE [Suspect]
     Active Substance: HYDROXYCHLOROQUINE
     Indication: COVID-19
     Dosage: 400 MG,  LOADING DOSE ,Q12H (EVERY 12 HOURS), FILM?COATED TABLET
     Route: 048
     Dates: start: 20201201
  3. HYDROXYCHLOROQUINE [Suspect]
     Active Substance: HYDROXYCHLOROQUINE
     Dosage: 200 MG,  MAINTENANCE DOSE ,Q12H (EVERY 12 HOURS), FILM?COATED TABLET
     Route: 048
  4. LOPINAVIR/RITONAVIR [Suspect]
     Active Substance: LOPINAVIR\RITONAVIR
     Dosage: UNK UNK, BID Q12H, LOPINAVIR 400 MG/RITONAVIR 100 MG
     Route: 048
  5. LOPINAVIR/RITONAVIR [Suspect]
     Active Substance: LOPINAVIR\RITONAVIR
     Indication: COVID-19
     Dosage: UNK UNK, BID Q12H, LOPINAVIR 800 MG/RITONAVIR 200 MG
     Route: 048
     Dates: start: 20201201

REACTIONS (6)
  - Off label use [Unknown]
  - Chest pain [Fatal]
  - Productive cough [Fatal]
  - Decreased appetite [Fatal]
  - Pyrexia [Fatal]
  - COVID-19 pneumonia [Fatal]

NARRATIVE: CASE EVENT DATE: 20201201
